FAERS Safety Report 5806585-2 (Version None)
Quarter: 2008Q3

REPORT INFORMATION
  Report Type: 
  Country: None (occurrence: None)
  Receive Date: 20080710
  Receipt Date: 20080630
  Transmission Date: 20090109
  Serious: Yes (Other)
  Sender: FDA-Public Use
  Company Number: PHHY2008JP12202

PATIENT
  Sex: Male

DRUGS (2)
  1. VOLTAREN [Suspect]
     Dosage: 1 TABLET/DAY
     Route: 048
  2. ORACEF [Suspect]
     Dosage: 2 DF/DAY
     Route: 048

REACTIONS (1)
  - PHARYNGEAL OEDEMA [None]
